FAERS Safety Report 11708253 (Version 3)
Quarter: 2019Q1

REPORT INFORMATION
  Report Type: Spontaneous
  Country: IT (occurrence: IT)
  Receive Date: 20151107
  Receipt Date: 20190326
  Transmission Date: 20190417
  Serious: Yes (Other)
  Sender: FDA-Public Use
  Company Number: IT-AUROBINDO-AUR-APL-2015-09943

PATIENT

DRUGS (6)
  1. ALLOPURINOL. [Concomitant]
     Active Substance: ALLOPURINOL
     Indication: PRODUCT USED FOR UNKNOWN INDICATION
     Dosage: 300 MILLIGRAM
     Route: 065
  2. DONEPEZIL FILM COATED TABLETS [Suspect]
     Active Substance: DONEPEZIL
     Dosage: 10 MILLIGRAM
     Route: 065
     Dates: start: 201209, end: 2012
  3. OMEPRAZOLE. [Concomitant]
     Active Substance: OMEPRAZOLE
     Indication: PRODUCT USED FOR UNKNOWN INDICATION
     Dosage: 10 MILLIGRAM
     Route: 065
  4. GLYCERYL TRINITRATE [Concomitant]
     Active Substance: NITROGLYCERIN
     Indication: HYPERTENSION
     Dosage: NITRO DERIVATIVE PATCH
     Route: 062
  5. DONEPEZIL FILM COATED TABLETS [Suspect]
     Active Substance: DONEPEZIL
     Indication: DEMENTIA ALZHEIMER^S TYPE
     Dosage: UNK
     Route: 065
     Dates: start: 201307
  6. ACETYLSALICYLIC ACID [Concomitant]
     Active Substance: ASPIRIN
     Indication: PRODUCT USED FOR UNKNOWN INDICATION
     Dosage: 100 MILLIGRAM
     Route: 065

REACTIONS (13)
  - Myalgia [Recovered/Resolved]
  - Petechiae [Recovered/Resolved]
  - Red blood cell sedimentation rate increased [Recovered/Resolved]
  - Arthralgia [Recovered/Resolved]
  - Rash [Recovered/Resolved]
  - Electrocardiogram QT prolonged [Recovered/Resolved]
  - Haematuria [Recovered/Resolved]
  - Histone antibody positive [Recovered/Resolved]
  - Blood creatinine increased [Recovered/Resolved]
  - Musculoskeletal pain [Recovered/Resolved]
  - Systemic lupus erythematosus [Recovered/Resolved]
  - Pericarditis [Recovered/Resolved]
  - Dyspnoea [Recovered/Resolved]
